FAERS Safety Report 10611219 (Version 3)
Quarter: 2014Q4

REPORT INFORMATION
  Report Type: Spontaneous
  Country: JP (occurrence: JP)
  Receive Date: 20141126
  Receipt Date: 20141231
  Transmission Date: 20150529
  Serious: Yes (Life-Threatening, Hospitalization, Other)
  Sender: FDA-Public Use
  Company Number: JP-SUCAMPO AG-SPI201400863

PATIENT
  Age: 86 Year
  Sex: Female

DRUGS (8)
  1. AMITIZA [Suspect]
     Active Substance: LUBIPROSTONE
     Indication: CONSTIPATION
     Dosage: 24 MCG, QD
     Route: 048
     Dates: start: 20141114
  2. WARFARIN [Concomitant]
     Active Substance: WARFARIN
     Indication: DEEP VEIN THROMBOSIS
     Dosage: 1.5 MG, QD
     Route: 048
     Dates: end: 20141117
  3. OLMETEC [Concomitant]
     Active Substance: OLMESARTAN MEDOXOMIL
     Indication: HYPERTENSION
     Dosage: 5 MG, QD
     Route: 048
  4. SORENTMIN [Concomitant]
     Active Substance: BROTIZOLAM
     Dosage: UNK
     Route: 048
  5. FEBURIC [Concomitant]
     Active Substance: FEBUXOSTAT
     Indication: HYPERURICAEMIA
     Dosage: 20 MG, QD
     Route: 048
  6. MAGLAX [Concomitant]
     Active Substance: MAGNESIUM OXIDE
     Indication: CONSTIPATION
     Dosage: 250 MG, QD
     Route: 048
  7. PURSENNID [Concomitant]
     Active Substance: SENNOSIDES A AND B
     Indication: CONSTIPATION
     Dosage: 12 MG, QD
     Route: 048
  8. WARFARIN [Concomitant]
     Active Substance: WARFARIN
     Dosage: 1.5 MG, QD
     Route: 048
     Dates: start: 20141128

REACTIONS (12)
  - Drug interaction [Recovered/Resolved]
  - Dizziness [Recovered/Resolved]
  - Haematochezia [Recovered/Resolved]
  - Ileus [Recovered/Resolved]
  - Transfusion [Recovered/Resolved]
  - Anaemia [Recovered/Resolved]
  - Intestinal haematoma [Recovered/Resolved]
  - Gastrointestinal haemorrhage [Recovered/Resolved]
  - Ascites [Recovered/Resolved]
  - Intestinal mucosal hypertrophy [Recovered/Resolved]
  - Chronic gastritis [None]
  - Gastritis erosive [None]

NARRATIVE: CASE EVENT DATE: 20141117
